FAERS Safety Report 21665168 (Version 1)
Quarter: 2022Q4

REPORT INFORMATION
  Report Type: Report from Study
  Country: US (occurrence: US)
  Receive Date: 20221130
  Receipt Date: 20221130
  Transmission Date: 20230113
  Serious: No
  Sender: FDA-Public Use
  Company Number: US-ABBVIE-4177872

PATIENT
  Sex: Female

DRUGS (4)
  1. RINVOQ [Suspect]
     Active Substance: UPADACITINIB
     Indication: Rheumatoid arthritis
     Route: 048
  2. Pfizer/BioNTech [Concomitant]
     Indication: COVID-19 immunisation
     Dosage: 1 IN 1 DAY, COVID VACCINE
     Route: 030
  3. Pfizer/BioNTech [Concomitant]
     Indication: COVID-19 immunisation
     Dosage: 1 IN 1 DAY, COVID VACCINE
     Route: 030
  4. Pfizer/BioNTech [Concomitant]
     Indication: COVID-19 immunisation
     Dosage: 1 IN 1 DAY, COVID BOOSTER VACCINE
     Route: 030

REACTIONS (3)
  - Phlebolith [Not Recovered/Not Resolved]
  - Peripheral swelling [Recovered/Resolved]
  - Hypertension [Recovered/Resolved]

NARRATIVE: CASE EVENT DATE: 20220101
